FAERS Safety Report 9822715 (Version 1)
Quarter: 2014Q1

REPORT INFORMATION
  Report Type: Spontaneous
  Country: US (occurrence: US)
  Receive Date: 20140116
  Receipt Date: 20140116
  Transmission Date: 20141002
  Serious: No
  Sender: FDA-Public Use
  Company Number: US-ALLERGAN-1303342US

PATIENT
  Age: 59 Year
  Sex: Female

DRUGS (1)
  1. PRED FORTE [Suspect]
     Indication: INFLAMMATION
     Dosage: 4 GTT, UNK
     Route: 047
     Dates: start: 20130302

REACTIONS (2)
  - Vision blurred [Unknown]
  - Vision blurred [Unknown]
